FAERS Safety Report 10504044 (Version 2)
Quarter: 2014Q4

REPORT INFORMATION
  Report Type: Spontaneous
  Country: US (occurrence: US)
  Receive Date: 20141008
  Receipt Date: 20141008
  Transmission Date: 20150528
  Serious: No
  Sender: FDA-Public Use
  Company Number: US-BEH-2013037486

PATIENT
  Sex: Female
  Weight: 45 kg

DRUGS (22)
  1. DIPHENHYDRAMINE [Concomitant]
     Active Substance: DIPHENHYDRAMINE
  2. EPIPEN [Concomitant]
     Active Substance: EPINEPHRINE
  3. ZITHROMAX [Concomitant]
     Active Substance: AZITHROMYCIN DIHYDRATE
  4. CIMETIDINE [Concomitant]
     Active Substance: CIMETIDINE
  5. HEPARIN [Concomitant]
     Active Substance: HEPARIN SODIUM
  6. FORTEO [Concomitant]
     Active Substance: TERIPARATIDE
  7. WELLBUTRIN [Concomitant]
     Active Substance: BUPROPION HYDROCHLORIDE
  8. ACETAMINOPHEN. [Concomitant]
     Active Substance: ACETAMINOPHEN
  9. VITAMIN D [Concomitant]
     Active Substance: CHOLECALCIFEROL
  10. COMBIVENT [Concomitant]
     Active Substance: ALBUTEROL SULFATE\IPRATROPIUM BROMIDE
  11. COZAAR [Concomitant]
     Active Substance: LOSARTAN POTASSIUM
  12. CALCIUM [Concomitant]
     Active Substance: CALCIUM
  13. SINGULAIR [Concomitant]
     Active Substance: MONTELUKAST SODIUM
  14. PROAIR HFA [Concomitant]
     Active Substance: ALBUTEROL SULFATE
  15. MAXAIR [Concomitant]
     Active Substance: PIRBUTEROL ACETATE
  16. PULMICORT TURBUHALER [Concomitant]
     Active Substance: BUDESONIDE
  17. TRAZODONE [Concomitant]
     Active Substance: TRAZODONE HYDROCHLORIDE
  18. CORTEF [Concomitant]
     Active Substance: HYDROCORTISONE
  19. PRIVIGEN [Suspect]
     Active Substance: HUMAN IMMUNOGLOBULIN G
     Indication: HYPOGLOBULINAEMIA
     Dosage: OVER 3 OR MORE HOURS AS TOLERATED
     Route: 042
  20. LAMICTAL [Concomitant]
     Active Substance: LAMOTRIGINE
  21. SODIUM CHLORIDE. [Concomitant]
     Active Substance: SODIUM CHLORIDE
  22. ALBUTEROL. [Concomitant]
     Active Substance: ALBUTEROL

REACTIONS (1)
  - Rash [Unknown]
